FAERS Safety Report 5073117-9 (Version None)
Quarter: 2006Q3

REPORT INFORMATION
  Report Type: 
  Country: None (occurrence: None)
  Receive Date: 20060802
  Receipt Date: 20060719
  Transmission Date: 20061208
  Serious: Yes (Other)
  Sender: FDA-Public Use
  Company Number: CHPA2006US07092

PATIENT
  Age: 39 Year
  Sex: Female
  Weight: 143.8 kg

DRUGS (12)
  1. NICOTINE [Suspect]
     Indication: SMOKING CESSATION THERAPY
     Dosage: 21 MG, QD, TRANSDERMAL
     Route: 062
     Dates: start: 20060706
  2. ATENOLOL [Concomitant]
  3. CALCIUM (CALCIUM) [Concomitant]
  4. CLONAZEPAM [Concomitant]
  5. ANTIVERT (MECLOZINE HYDROCHLORIDE) [Concomitant]
  6. CYCLOBENZAPRINE HCL [Concomitant]
  7. ASPIRIN [Concomitant]
  8. VICODIN [Concomitant]
  9. LIPITOR [Concomitant]
  10. METFORMIN (METFORMIN) [Concomitant]
  11. ^HYDROCHLOROQUIN^ [Concomitant]
  12. PRILOSEC [Concomitant]

REACTIONS (2)
  - AGGRESSION [None]
  - ANGER [None]
